FAERS Safety Report 15981282 (Version 3)
Quarter: 2019Q3

REPORT INFORMATION
  Report Type: Spontaneous
  Country: IT (occurrence: IT)
  Receive Date: 20190219
  Receipt Date: 20190703
  Transmission Date: 20191004
  Serious: Yes (Hospitalization, Other)
  Sender: FDA-Public Use
  Company Number: PHHY2019IT033283

PATIENT
  Age: 33 Year
  Sex: Female

DRUGS (7)
  1. LOW MOLECULAR WEIGHT HEPARIN [Suspect]
     Active Substance: UNSPECIFIED INGREDIENT
     Indication: ANTIPHOSPHOLIPID SYNDROME
     Dosage: 100 IU/KG, QD
     Route: 065
  2. ACETYLSALICYLIC ACID [Suspect]
     Active Substance: ASPIRIN
     Indication: ANTIPHOSPHOLIPID SYNDROME
     Dosage: 100 MG, QD
     Route: 065
  3. HYDROXYCHLOROQUINE [Suspect]
     Active Substance: HYDROXYCHLOROQUINE
     Indication: ANTIPHOSPHOLIPID SYNDROME
     Dosage: 300 MG, QD
     Route: 048
  4. FOLIC ACID. [Suspect]
     Active Substance: FOLIC ACID
     Indication: PRODUCT USED FOR UNKNOWN INDICATION
     Route: 065
  5. ECULIZUMAB [Suspect]
     Active Substance: ECULIZUMAB
     Indication: ANTIPHOSPHOLIPID SYNDROME
     Dosage: 600 MG, UNK
     Route: 041
  6. ANTITHROMBIN III [Suspect]
     Active Substance: ANTITHROMBIN III HUMAN
     Indication: ANTIPHOSPHOLIPID SYNDROME
     Dosage: 1.7 IU/KG, QH
     Route: 041
  7. ECULIZUMAB [Suspect]
     Active Substance: ECULIZUMAB
     Dosage: UNK
     Route: 041

REACTIONS (10)
  - Haemorrhage [Recovering/Resolving]
  - Haemolytic anaemia [Recovering/Resolving]
  - Premature delivery [Unknown]
  - Proteinuria [Unknown]
  - Product administration error [Unknown]
  - Maternal exposure during pregnancy [Unknown]
  - Thrombocytopenia [Recovering/Resolving]
  - Product use in unapproved indication [Unknown]
  - Renal impairment [Recovering/Resolving]
  - Labelled drug-drug interaction medication error [Unknown]
